FAERS Safety Report 7803657 (Version 2)
Quarter: 2013Q3

REPORT INFORMATION
  Report Type: Spontaneous
  Country: US (occurrence: US)
  Receive Date: 20110208
  Receipt Date: 20130812
  Transmission Date: 20140515
  Serious: Yes (Hospitalization)
  Sender: FDA-Public Use
  Company Number: US-B.I. PHARMACEUTICALS,INC./RIDGEFIELD-2011-BP-02004BP

PATIENT
  Age: 72 Year
  Sex: Female

DRUGS (11)
  1. PRADAXA [Suspect]
     Indication: ATRIAL FIBRILLATION
     Dates: start: 20110106
  2. MULTAQ [Suspect]
     Indication: ATRIAL FIBRILLATION
     Dosage: 800 MG
     Route: 048
     Dates: start: 20110106
  3. AMOXICILLIN [Concomitant]
  4. BABY ASPIRIN [Concomitant]
  5. CALTRATE [Concomitant]
  6. WELCHOL [Concomitant]
  7. IMDUR [Concomitant]
  8. METFORMIN [Concomitant]
  9. METOPROLOL [Concomitant]
  10. ZOCOR [Concomitant]
  11. VALSARTAN [Concomitant]

REACTIONS (1)
  - Gastrointestinal haemorrhage [Recovered/Resolved]
